FAERS Safety Report 10425575 (Version 1)
Quarter: 2014Q3

REPORT INFORMATION
  Report Type: Spontaneous
  Country: IE (occurrence: IE)
  Receive Date: 20140902
  Receipt Date: 20140902
  Transmission Date: 20150326
  Serious: Yes (Death)
  Sender: FDA-Public Use
  Company Number: IE-AMGEN-IRLSP2014066719

PATIENT
  Age: 76 Year
  Sex: Male

DRUGS (11)
  1. KIN [Concomitant]
     Dosage: UNK
  2. MYCOSTATIN [Concomitant]
     Active Substance: NYSTATIN
     Dosage: UNK
  3. NEULASTA [Suspect]
     Active Substance: PEGFILGRASTIM
     Indication: PROSTATE CANCER
     Dosage: 6MG/0.6ML, POST CHEMO EVERY THREE WEEKS
     Route: 058
     Dates: start: 20130801
  4. ZOFRAN                             /00955301/ [Concomitant]
     Active Substance: ONDANSETRON HYDROCHLORIDE
     Dosage: UNK
  5. PROLOSIN [Concomitant]
     Dosage: UNK
  6. CALCICHEW [Concomitant]
     Active Substance: CALCIUM CARBONATE
     Dosage: UNK
  7. VIMOVO [Concomitant]
     Active Substance: ESOMEPRAZOLE MAGNESIUM\NAPROXEN
     Dosage: UNK
  8. TAXOTERE [Concomitant]
     Active Substance: DOCETAXEL
     Dosage: UNK
  9. IXPRIM [Concomitant]
     Active Substance: ACETAMINOPHEN\TRAMADOL HYDROCHLORIDE
     Dosage: UNK
  10. DEXAMETHASONE. [Concomitant]
     Active Substance: DEXAMETHASONE
     Dosage: UNK
  11. VALOID                             /00014902/ [Concomitant]
     Active Substance: CYCLIZINE HYDROCHLORIDE
     Dosage: UNK

REACTIONS (1)
  - Death [Fatal]

NARRATIVE: CASE EVENT DATE: 20140604
